FAERS Safety Report 15976139 (Version 1)
Quarter: 2019Q1

REPORT INFORMATION
  Report Type: Spontaneous
  Country: US (occurrence: US)
  Receive Date: 20190218
  Receipt Date: 20190218
  Transmission Date: 20190418
  Serious: No
  Sender: FDA-Public Use
  Company Number: US-PFIZER INC-2019062075

PATIENT
  Age: 70 Year
  Sex: Female
  Weight: 56.25 kg

DRUGS (2)
  1. DEPO-MEDROL [Suspect]
     Active Substance: METHYLPREDNISOLONE ACETATE
     Indication: INFLAMMATION
     Dosage: UNK (UNKNOWN DOSAGE, SAME DOSE EACH TIME, TWICE A YEAR)
     Route: 014
     Dates: start: 20190204
  2. DEPO-MEDROL [Suspect]
     Active Substance: METHYLPREDNISOLONE ACETATE
     Indication: ARTHRALGIA
     Dosage: UNK (UNKNOWN DOSAGE, SAME DOSE EACH TIME, TWICE A YEAR)
     Route: 014
     Dates: start: 2015, end: 201804

REACTIONS (9)
  - Sensitive skin [Recovered/Resolved]
  - Nausea [Recovered/Resolved]
  - Injection site paraesthesia [Recovered/Resolved]
  - Pain in extremity [Recovered/Resolved]
  - Injection site pain [Recovered/Resolved]
  - Tremor [Recovered/Resolved]
  - Groin pain [Recovered/Resolved]
  - Arthralgia [Recovered/Resolved]
  - Discomfort [Recovered/Resolved]

NARRATIVE: CASE EVENT DATE: 20190204
